FAERS Safety Report 8838716 (Version 1)
Quarter: 2012Q4

REPORT INFORMATION
  Report Type: 
  Country: US (occurrence: US)
  Receive Date: 20121012
  Receipt Date: 20121012
  Transmission Date: 20130627
  Serious: Yes (Hospitalization)
  Sender: FDA-Public Use
  Company Number: US-BAXTER-2012BAX018756

PATIENT
  Sex: Female
  Weight: 55.84 kg

DRUGS (4)
  1. CYTOXAN? (CYCLOPHOSPHAMIDE FOR INJECTION, USP) [Suspect]
     Indication: BREAST CANCER
     Route: 065
     Dates: start: 199805
  2. ADRIAMYCIN [Suspect]
     Indication: BREAST CANCER
     Route: 065
     Dates: start: 199805
  3. CISPLATIN [Suspect]
     Indication: BREAST CANCER
     Route: 065
     Dates: start: 199805
  4. CARBOPLATIN [Suspect]
     Indication: BREAST CANCER
     Route: 065
     Dates: start: 199805

REACTIONS (2)
  - Pancreatitis chronic [Recovered/Resolved]
  - Liver disorder [Not Recovered/Not Resolved]
